FAERS Safety Report 11215459 (Version 3)
Quarter: 2019Q2

REPORT INFORMATION
  Report Type: Report from Study
  Country: DE (occurrence: DE)
  Receive Date: 20150624
  Receipt Date: 20190531
  Transmission Date: 20190711
  Serious: Yes (Hospitalization)
  Sender: FDA-Public Use
  Company Number: DE-ROCHE-1591840

PATIENT
  Age: 77 Year
  Sex: Male
  Weight: 66 kg

DRUGS (4)
  1. OBINUTUZUMAB. [Suspect]
     Active Substance: OBINUTUZUMAB
     Dosage: LAST DOSE PRIOR TO SAE WAS 20/NOV/2017
     Route: 042
     Dates: start: 20160113
  2. BENDAMUSTINE [Suspect]
     Active Substance: BENDAMUSTINE
     Indication: CHRONIC LYMPHOCYTIC LEUKAEMIA
     Dosage: ON 21/MAY/215, THE PATIENT RECEIVED THE LAST DOSE (128MG) OF BENDAMUSTINE PRIOR TO ONSET OF THE EVEN
     Route: 042
     Dates: start: 20150520
  3. EUTHYROX [Concomitant]
     Active Substance: LEVOTHYROXINE SODIUM
     Route: 048
     Dates: start: 2009
  4. OBINUTUZUMAB. [Suspect]
     Active Substance: OBINUTUZUMAB
     Indication: CHRONIC LYMPHOCYTIC LEUKAEMIA
     Dosage: 100MG ON C1D1, 900MG ON C1D2, 1000MG ON DAYS 8 AND 15 OF CYCLE 1 AND 1000MG ON DAY 1 OF CYCLES 2-6.
     Route: 042
     Dates: start: 20150518

REACTIONS (2)
  - Pneumonia chlamydial [Recovered/Resolved]
  - Pneumonitis [Recovered/Resolved]

NARRATIVE: CASE EVENT DATE: 20150604
